FAERS Safety Report 6111660-1 (Version None)
Quarter: 2009Q1

REPORT INFORMATION
  Report Type: 
  Country: None (occurrence: None)
  Receive Date: 20090311
  Receipt Date: 20090226
  Transmission Date: 20090719
  Serious: Yes (Other)
  Sender: FDA-Public Use
  Company Number: ES-PFIZER INC-2009175679

PATIENT

DRUGS (2)
  1. LYRICA [Suspect]
     Indication: INTERVERTEBRAL DISC PROTRUSION
     Route: 048
     Dates: start: 20081101, end: 20081201
  2. IBUPROFEN [Concomitant]

REACTIONS (2)
  - HIRSUTISM [None]
  - PETIT MAL EPILEPSY [None]
